FAERS Safety Report 25088147 (Version 1)
Quarter: 2025Q1

REPORT INFORMATION
  Report Type: Report from Study
  Country: CA (occurrence: CA)
  Receive Date: 20250318
  Receipt Date: 20250318
  Transmission Date: 20250408
  Serious: Yes (Death)
  Sender: CSL BEHRING
  Company Number: CA-BEH-2025199033

PATIENT
  Age: 72 Year
  Sex: Female
  Weight: 78 kg

DRUGS (1)
  1. HIZENTRA [Suspect]
     Active Substance: HUMAN IMMUNOGLOBULIN G
     Indication: Secondary immunodeficiency
     Dosage: 8 G, QW
     Route: 065
     Dates: start: 20241015

REACTIONS (1)
  - Death [Fatal]

NARRATIVE: CASE EVENT DATE: 20250228
